FAERS Safety Report 13067174 (Version 3)
Quarter: 2017Q1

REPORT INFORMATION
  Report Type: Report from Study
  Country: None (occurrence: RO)
  Receive Date: 20161227
  Receipt Date: 20170206
  Transmission Date: 20170428
  Serious: Yes (Life-Threatening, Hospitalization, Other)
  Sender: FDA-Public Use
  Company Number: RO-ABBVIE-16P-135-1776242-00

PATIENT
  Age: 58 Year
  Sex: Male
  Weight: 90 kg

DRUGS (6)
  1. VIEKIRAX [Suspect]
     Active Substance: OMBITASVIR\PARITAPREVIR\RITONAVIR
     Indication: HEPATIC CIRRHOSIS
  2. EXVIERA [Suspect]
     Active Substance: DASABUVIR
     Indication: HEPATIC CIRRHOSIS
  3. RIBAVIRIN. [Concomitant]
     Active Substance: RIBAVIRIN
     Indication: HEPATIC CIRRHOSIS
     Route: 048
     Dates: start: 20161026
  4. EXVIERA [Suspect]
     Active Substance: DASABUVIR
     Indication: HEPATITIS C
     Route: 048
     Dates: start: 20161026, end: 20161216
  5. BETALOC [Concomitant]
     Active Substance: METOPROLOL TARTRATE
     Indication: HYPERTENSION
     Route: 048
     Dates: start: 2013
  6. VIEKIRAX [Suspect]
     Active Substance: OMBITASVIR\PARITAPREVIR\RITONAVIR
     Indication: HEPATITIS C
     Route: 048
     Dates: start: 20161026, end: 20161216

REACTIONS (14)
  - Dizziness [Recovered/Resolved]
  - Epistaxis [Recovering/Resolving]
  - Abdominal pain [Recovered/Resolved]
  - Palpitations [Recovering/Resolving]
  - Pruritus [Not Recovered/Not Resolved]
  - Hepatic encephalopathy [Recovering/Resolving]
  - Nausea [Recovered/Resolved]
  - Dyspepsia [Not Recovered/Not Resolved]
  - Duodenal ulcer [Recovered/Resolved]
  - Confusional state [Recovered/Resolved]
  - Personality disorder [Recovered/Resolved]
  - Splenomegaly [Unknown]
  - Hyperammonaemia [Recovering/Resolving]
  - Delirium [Recovered/Resolved]

NARRATIVE: CASE EVENT DATE: 20161026
